FAERS Safety Report 8841344 (Version 7)
Quarter: 2013Q4

REPORT INFORMATION
  Report Type: Spontaneous
  Country: JP (occurrence: JP)
  Receive Date: 20121015
  Receipt Date: 20131023
  Transmission Date: 20140711
  Serious: Yes (Hospitalization, Other)
  Sender: FDA-Public Use
  Company Number: JP-PFIZER INC-2012253968

PATIENT
  Age: 64 Year
  Sex: Male
  Weight: 69.52 kg

DRUGS (5)
  1. CHAMPIX [Suspect]
     Indication: NICOTINE DEPENDENCE
     Dosage: 1 MG, UNK
     Route: 048
     Dates: start: 20120817, end: 20120830
  2. CHAMPIX [Suspect]
     Dosage: 1 MG, 2X/DAY
     Route: 048
     Dates: start: 20120831, end: 20120920
  3. CRESTOR [Suspect]
     Indication: DYSLIPIDAEMIA
     Dosage: 2.5 MG, 1X/DAY
     Route: 048
     Dates: start: 20120720
  4. VICTOZA [Concomitant]
     Indication: DIABETES MELLITUS
     Dosage: 0.3 MG, 1X/DAY
     Route: 058
     Dates: start: 20120720
  5. RHEILA [Concomitant]
     Dosage: UNK
     Route: 062
     Dates: start: 20120920

REACTIONS (12)
  - Suicidal ideation [Not Recovered/Not Resolved]
  - Hallucinations, mixed [Recovering/Resolving]
  - Confusional state [Recovering/Resolving]
  - Depression [Recovering/Resolving]
  - Anxiety [Recovering/Resolving]
  - Mood altered [Recovering/Resolving]
  - Insomnia [Recovering/Resolving]
  - Affect lability [Recovering/Resolving]
  - Restlessness [Recovering/Resolving]
  - Delusion [Recovering/Resolving]
  - Nausea [Unknown]
  - Delirium [Unknown]
